FAERS Safety Report 13748471 (Version 1)
Quarter: 2017Q3

REPORT INFORMATION
  Report Type: Spontaneous
  Country: IT (occurrence: IT)
  Receive Date: 20170713
  Receipt Date: 20170713
  Transmission Date: 20171127
  Serious: Yes (Other)
  Sender: FDA-Public Use
  Company Number: IT-ASTRAZENECA-2017SE71338

PATIENT
  Age: 18 Year
  Sex: Male

DRUGS (3)
  1. IBUPROFEN. [Suspect]
     Active Substance: IBUPROFEN
     Indication: INFLUENZA
     Route: 048
  2. MORNIFLUMATE [Suspect]
     Active Substance: MORNIFLUMATE
     Indication: INFLUENZA
     Route: 048
  3. BUDESONIDE + FORMOTEROL [Suspect]
     Active Substance: BUDESONIDE\FORMOTEROL
     Indication: INFLUENZA
     Route: 055

REACTIONS (3)
  - Labelled drug-drug interaction medication error [Unknown]
  - Gastritis erosive [Unknown]
  - Off label use [Unknown]
